FAERS Safety Report 12609290 (Version 1)
Quarter: 2016Q3

REPORT INFORMATION
  Report Type: Spontaneous
  Country: HU (occurrence: HU)
  Receive Date: 20160801
  Receipt Date: 20160801
  Transmission Date: 20161109
  Serious: Yes (Hospitalization)
  Sender: FDA-Public Use
  Company Number: HU-ACCORD-042686

PATIENT
  Age: 69 Year
  Sex: Male

DRUGS (1)
  1. CISPLATIN. [Suspect]
     Active Substance: CISPLATIN
     Indication: MESOTHELIOMA MALIGNANT
     Dosage: 1 MG CISPLATIN/ML, APPROXIMATELY 10-15 MG ADMINISTERED IN 40-50 MINUTES
     Route: 041
     Dates: start: 20160606, end: 20160606

REACTIONS (5)
  - Chills [Recovered/Resolved]
  - Erythema [Recovered/Resolved]
  - Malaise [Recovered/Resolved]
  - Nausea [Recovered/Resolved]
  - Pruritus [Recovered/Resolved]

NARRATIVE: CASE EVENT DATE: 20160606
